FAERS Safety Report 5696114-9 (Version None)
Quarter: 2008Q2

REPORT INFORMATION
  Report Type: 
  Country: None (occurrence: None)
  Receive Date: 20080407
  Receipt Date: 20080327
  Transmission Date: 20081010
  Serious: Yes (Hospitalization)
  Sender: FDA-Public Use
  Company Number: FR-ASTRAZENECA-2008CG00479

PATIENT
  Age: 53 Year
  Sex: Male

DRUGS (3)
  1. NEXIUM [Suspect]
     Route: 048
     Dates: end: 20080308
  2. BISOPROLOL FUMARATE AND HYDROCHLOROTHIAZIDE [Suspect]
  3. DEROXAT [Concomitant]

REACTIONS (3)
  - ANDROGEN DEFICIENCY [None]
  - ERECTILE DYSFUNCTION [None]
  - HYPERPROLACTINAEMIA [None]
